FAERS Safety Report 25106997 (Version 1)
Quarter: 2025Q1

REPORT INFORMATION
  Report Type: Report from Study
  Country: AR (occurrence: AR)
  Receive Date: 20250321
  Receipt Date: 20250321
  Transmission Date: 20250408
  Serious: Yes (Life-Threatening, Other)
  Sender: NOVARTIS
  Company Number: AR-002147023-NVSC2025AR029040

PATIENT
  Age: 67 Year
  Sex: Female

DRUGS (3)
  1. LETROZOLE [Suspect]
     Active Substance: LETROZOLE
     Indication: Breast cancer metastatic
     Dosage: 1 DOSAGE FORM, QD (2.5MG)
     Route: 048
     Dates: start: 20240215
  2. KISQALI [Suspect]
     Active Substance: RIBOCICLIB
     Indication: Breast cancer metastatic
     Dosage: 600 MG, QD (3)
     Route: 048
     Dates: start: 20240215
  3. CALCIUM [Concomitant]
     Active Substance: CALCIUM
     Indication: Bone disorder
     Route: 065

REACTIONS (9)
  - Platelet count decreased [Unknown]
  - Osteochondrosis [Unknown]
  - Rash [Unknown]
  - Rash papular [Unknown]
  - Pain [Unknown]
  - Herpes zoster [Unknown]
  - Pain in extremity [Unknown]
  - Decreased immune responsiveness [Unknown]
  - Platelet count increased [Unknown]

NARRATIVE: CASE EVENT DATE: 20250201
